FAERS Safety Report 5097867-3 (Version None)
Quarter: 2006Q3

REPORT INFORMATION
  Report Type: 
  Country: None (occurrence: None)
  Receive Date: 20060905
  Receipt Date: 20060905
  Transmission Date: 20061208
  Serious: No
  Sender: FDA-Public Use
  Company Number: None

PATIENT

DRUGS (1)
  1. PERCOCET-5 [Suspect]

REACTIONS (3)
  - HEADACHE [None]
  - NAUSEA [None]
  - RASH [None]
